FAERS Safety Report 5028018-9 (Version None)
Quarter: 2006Q2

REPORT INFORMATION
  Report Type: 
  Country: None (occurrence: None)
  Receive Date: 20060612
  Receipt Date: 20060525
  Transmission Date: 20061013
  Serious: Yes (Death)
  Sender: FDA-Public Use
  Company Number: GBR-2006-0002314

PATIENT
  Age: 70 Year
  Sex: Male

DRUGS (1)
  1. OXYNORM INJECTION 10MG/ML(OXYCODONE HYDROCHLORIDE) SOLUTION FOR INJECT [Suspect]
     Dosage: 80 MG, Q24H, IV DRIP
     Route: 041

REACTIONS (1)
  - INCORRECT DOSE ADMINISTERED [None]
